FAERS Safety Report 14835012 (Version 4)
Quarter: 2018Q2

REPORT INFORMATION
  Report Type: Spontaneous
  Country: JP (occurrence: JP)
  Receive Date: 20180501
  Receipt Date: 20180525
  Transmission Date: 20180711
  Serious: Yes (Other)
  Sender: FDA-Public Use
  Company Number: JP-ABBVIE-18P-087-2308943-00

PATIENT
  Age: 77 Year
  Sex: Male
  Weight: 57.6 kg

DRUGS (6)
  1. MAVIRET [Suspect]
     Active Substance: GLECAPREVIR\PIBRENTASVIR
     Indication: HEPATIC CIRRHOSIS
     Route: 048
     Dates: start: 20180217
  2. OLMESARTAN MEDOXOMIL. [Concomitant]
     Active Substance: OLMESARTAN MEDOXOMIL
     Indication: HYPERTENSION
     Route: 048
  3. SPIRONOLACTONE. [Concomitant]
     Active Substance: SPIRONOLACTONE
     Indication: PRODUCT USED FOR UNKNOWN INDICATION
  4. AMINO ACID PREPARATIONS FOR HEPATIC CIRRHOSIS [Concomitant]
     Indication: HEPATIC CIRRHOSIS
     Dates: start: 20180316, end: 20180323
  5. MAVIRET [Suspect]
     Active Substance: GLECAPREVIR\PIBRENTASVIR
     Indication: HEPATITIS C
  6. ALOGLIPTIN BENZOATE [Concomitant]
     Active Substance: ALOGLIPTIN BENZOATE
     Indication: DIABETES MELLITUS
     Route: 048

REACTIONS (4)
  - Hepatocellular carcinoma [Not Recovered/Not Resolved]
  - Child-Pugh-Turcotte score increased [Unknown]
  - Prothrombin level decreased [Unknown]
  - Ascites [Unknown]

NARRATIVE: CASE EVENT DATE: 20180314
